FAERS Safety Report 5344985-8 (Version None)
Quarter: 2007Q2

REPORT INFORMATION
  Report Type: 
  Country: None (occurrence: None)
  Receive Date: 20070416
  Receipt Date: 20061220
  Transmission Date: 20071010
  Serious: No
  Sender: FDA-Public Use
  Company Number: 2006SP004463

PATIENT
  Age: 48 Year
  Sex: Female
  Weight: 104.3273 kg

DRUGS (6)
  1. LUNESTA [Suspect]
     Indication: INSOMNIA
     Dosage: 2 MG;1X;ORAL
     Route: 048
     Dates: start: 20061212, end: 20061212
  2. SYNTHROID [Concomitant]
  3. FOSINOPRIL SODIUM [Concomitant]
  4. CALCIUM CHLORIDE [Concomitant]
  5. VITAMIN CAP [Concomitant]
  6. FISH OIL [Concomitant]

REACTIONS (3)
  - CONFUSIONAL STATE [None]
  - HYPERTENSION [None]
  - TREMOR [None]
